FAERS Safety Report 21678145 (Version 1)
Quarter: 2022Q4

REPORT INFORMATION
  Report Type: Spontaneous
  Country: ES (occurrence: ES)
  Receive Date: 20221203
  Receipt Date: 20221203
  Transmission Date: 20230112
  Serious: Yes (Other)
  Sender: FDA-Public Use
  Company Number: None

PATIENT
  Age: 65 Year
  Sex: Female

DRUGS (1)
  1. LENALIDOMIDE [Suspect]
     Active Substance: LENALIDOMIDE
     Indication: Plasma cell myeloma
     Dosage: 5 MILLIGRAM DAILY;  5MG DAILY  , LENALIDOMIDA (8089A) , DURATION : 885 DAYS
     Dates: start: 20200514, end: 20221015

REACTIONS (1)
  - Paget^s disease of the vulva [Unknown]

NARRATIVE: CASE EVENT DATE: 20220914
